FAERS Safety Report 4375685-9 (Version None)
Quarter: 2004Q2

REPORT INFORMATION
  Report Type: 
  Country: None (occurrence: None)
  Receive Date: 20040607
  Receipt Date: 20040524
  Transmission Date: 20050107
  Serious: Yes (Hospitalization, Other)
  Sender: FDA-Public Use
  Company Number: US-JNJFOC-20040301627

PATIENT
  Age: 62 Year
  Sex: Female
  Weight: 43.0917 kg

DRUGS (9)
  1. REMICADE [Suspect]
     Indication: RHEUMATOID ARTHRITIS
     Dosage: 300 MG, 1 IN 2 MONTH, INTRAVENOUS
     Route: 042
     Dates: start: 20000801, end: 20011001
  2. METHOTREXATE [Concomitant]
  3. SULFATE (FERROUS SULFATE) [Concomitant]
  4. FOLIC ACID [Concomitant]
  5. DARVOCET [Concomitant]
  6. DOXEIN* (DOXEPIN) [Concomitant]
  7. PRILOSEC [Concomitant]
  8. TRAZODONE HCL [Concomitant]
  9. IBUPROFEN [Concomitant]

REACTIONS (9)
  - ANOREXIA [None]
  - ANTINUCLEAR ANTIBODY POSITIVE [None]
  - CHILLS [None]
  - DNA ANTIBODY POSITIVE [None]
  - LUPUS-LIKE SYNDROME [None]
  - PYREXIA [None]
  - RED BLOOD CELL SEDIMENTATION RATE INCREASED [None]
  - RHEUMATOID FACTOR POSITIVE [None]
  - WEIGHT DECREASED [None]
